FAERS Safety Report 13516989 (Version 1)
Quarter: 2017Q2

REPORT INFORMATION
  Report Type: Spontaneous
  Country: US (occurrence: US)
  Receive Date: 20170504
  Receipt Date: 20170504
  Transmission Date: 20170830
  Serious: No
  Sender: FDA-Public Use
  Company Number: None

PATIENT
  Sex: Male

DRUGS (1)
  1. SUTENT [Suspect]
     Active Substance: SUNITINIB MALATE
     Dosage: 50 MG DAILY FOR 28 DAYS ON AND 14 DAYS OFF ORALLY
     Route: 048
     Dates: start: 20161102

REACTIONS (3)
  - Decreased appetite [None]
  - Nausea [None]
  - Diarrhoea [None]
